FAERS Safety Report 9644030 (Version 5)
Quarter: 2023Q1

REPORT INFORMATION
  Report Type: Spontaneous
  Country: IT (occurrence: IT)
  Receive Date: 20131024
  Receipt Date: 20230110
  Transmission Date: 20230417
  Serious: Yes (Death, Hospitalization, Other)
  Sender: FDA-Public Use
  Company Number: PHHY2013IT117157

PATIENT
  Age: 64 Year
  Sex: Male

DRUGS (5)
  1. AMOXICILLIN TRIHYDRATE [Suspect]
     Active Substance: AMOXICILLIN
     Indication: Dental disorder prophylaxis
     Dosage: 1 DF, UNK (1000 MG) (TAKEN A TOTAL OF 5 PILLS)
     Route: 048
  2. ISOSORBIDE DINITRATE [Concomitant]
     Active Substance: ISOSORBIDE DINITRATE
     Indication: Product used for unknown indication
     Dosage: 5 MG
     Route: 060
  3. ASPIRIN [Concomitant]
     Active Substance: ASPIRIN
     Indication: Product used for unknown indication
     Dosage: 500 MG
     Route: 042
  4. HEPARIN [Concomitant]
     Active Substance: HEPARIN SODIUM
     Indication: Product used for unknown indication
     Dosage: UNK
     Route: 065
  5. CLOPIDOGREL [Concomitant]
     Active Substance: CLOPIDOGREL BISULFATE
     Indication: Product used for unknown indication
     Dosage: 600 MG
     Route: 065

REACTIONS (9)
  - Kounis syndrome [Fatal]
  - Coronary artery disease [Fatal]
  - Chest pain [Fatal]
  - Abdominal pain upper [Fatal]
  - Asthenia [Fatal]
  - Hyperhidrosis [Fatal]
  - Electrocardiogram abnormal [Recovered/Resolved]
  - Acute myocardial infarction [Recovered/Resolved]
  - Anaphylactic reaction [Recovered/Resolved]
